FAERS Safety Report 15689185 (Version 1)
Quarter: 2018Q4

REPORT INFORMATION
  Report Type: Spontaneous
  Country: MX (occurrence: MX)
  Receive Date: 20181204
  Receipt Date: 20181204
  Transmission Date: 20190205
  Serious: Yes (Disabling)
  Sender: FDA-Public Use
  Company Number: None

PATIENT
  Age: 72 Year
  Sex: Male
  Weight: 78 kg

DRUGS (6)
  1. FIRISTO [Concomitant]
  2. TALIZER [Suspect]
     Active Substance: THALIDOMIDE
     Indication: PRODUCT USED FOR UNKNOWN INDICATION
     Dosage: ?          QUANTITY:1 TABLET(S);?
     Route: 048
  3. LOSARTAN. [Concomitant]
     Active Substance: LOSARTAN
  4. AMIODONA [Concomitant]
  5. CALCITRIOL. [Concomitant]
     Active Substance: CALCITRIOL
  6. FUROSIMIDA [Concomitant]

REACTIONS (7)
  - Tremor [None]
  - Mental status changes [None]
  - Loss of consciousness [None]
  - Oropharyngeal pain [None]
  - Asthenia [None]
  - Gait inability [None]
  - Disorientation [None]
